FAERS Safety Report 15897555 (Version 1)
Quarter: 2019Q1

REPORT INFORMATION
  Report Type: Spontaneous
  Country: US (occurrence: US)
  Receive Date: 20190131
  Receipt Date: 20190131
  Transmission Date: 20190417
  Serious: No
  Sender: FDA-Public Use
  Company Number: US-009507513-1901USA001088

PATIENT
  Sex: Female

DRUGS (1)
  1. DULERA [Suspect]
     Active Substance: FORMOTEROL FUMARATE DIHYDRATE\MOMETASONE FUROATE
     Dosage: 1 PUFF ORALLY DAILY
     Route: 055

REACTIONS (4)
  - No adverse event [Unknown]
  - Product quality issue [Unknown]
  - Intentional product misuse [Unknown]
  - Poor quality product administered [Unknown]
